FAERS Safety Report 9702719 (Version 1)
Quarter: 2013Q4

REPORT INFORMATION
  Report Type: Spontaneous
  Country: US (occurrence: US)
  Receive Date: 20131121
  Receipt Date: 20131121
  Transmission Date: 20140711
  Serious: Yes (Hospitalization)
  Sender: FDA-Public Use
  Company Number: US-ASTRAZENECA-2013SE83736

PATIENT
  Age: 21 Day
  Sex: Male
  Weight: 2.8 kg

DRUGS (3)
  1. SYNAGIS [Suspect]
     Indication: ANTIVIRAL PROPHYLAXIS
     Dosage: STRENGTH OF DOSAGE FORM: 50MG/0.5ML, DOSE- 15 MG/KG, ONCE A MONTH
     Route: 030
     Dates: start: 20131017
  2. HEPATITIS B [Suspect]
     Route: 065
     Dates: start: 20131017
  3. POLY VI SOL WITH IRON [Concomitant]

REACTIONS (2)
  - Apnoea [Recovered/Resolved]
  - Oxygen saturation decreased [Recovered/Resolved]
